FAERS Safety Report 22062870 (Version 3)
Quarter: 2023Q1

REPORT INFORMATION
  Report Type: Report from Study
  Country: ES (occurrence: ES)
  Receive Date: 20230306
  Receipt Date: 20230329
  Transmission Date: 20230418
  Serious: Yes (Hospitalization)
  Sender: FDA-Public Use
  Company Number: ES-JNJFOC-20230307452

PATIENT
  Age: 48 Year
  Sex: Male

DRUGS (6)
  1. TRABECTEDIN [Suspect]
     Active Substance: TRABECTEDIN
     Indication: Chondrosarcoma
     Dosage: CYCLE 1
     Route: 041
     Dates: start: 20230123
  2. TRABECTEDIN [Suspect]
     Active Substance: TRABECTEDIN
     Dosage: CYCLE 2
     Route: 041
     Dates: start: 20230213
  3. TRABECTEDIN [Suspect]
     Active Substance: TRABECTEDIN
     Route: 041
     Dates: start: 20230306
  4. METFORMIN HYDROCHLORIDE [Concomitant]
     Active Substance: METFORMIN HYDROCHLORIDE
     Indication: Product used for unknown indication
     Route: 065
  5. DEXAMETHASONE [Concomitant]
     Active Substance: DEXAMETHASONE
     Indication: Product used for unknown indication
     Route: 065
  6. ACETAMINOPHEN\TRAMADOL [Concomitant]
     Active Substance: ACETAMINOPHEN\TRAMADOL
     Indication: Product used for unknown indication
     Route: 065

REACTIONS (3)
  - Neutropenia [Not Recovered/Not Resolved]
  - Anaemia [Not Recovered/Not Resolved]
  - Pericarditis [Not Recovered/Not Resolved]

NARRATIVE: CASE EVENT DATE: 20230223
